FAERS Safety Report 8109293-0 (Version None)
Quarter: 2012Q1

REPORT INFORMATION
  Report Type: 
  Country: None (occurrence: None)
  Receive Date: 20120202
  Receipt Date: 20120105
  Transmission Date: 20120608
  Serious: No
  Sender: FDA-Public Use
  Company Number: US-AMGEN-USASP2012000793

PATIENT
  Age: 41 Year
  Sex: Female
  Weight: 63.492 kg

DRUGS (2)
  1. NAPROSYN [Concomitant]
     Dosage: 500 MG, UNK
     Route: 048
  2. ENBREL [Suspect]
     Indication: RHEUMATOID ARTHRITIS
     Dosage: 50 MG, QWK
     Route: 058

REACTIONS (2)
  - FUNGAL INFECTION [None]
  - HEADACHE [None]
